FAERS Safety Report 9015335 (Version 1)
Quarter: 2013Q1

REPORT INFORMATION
  Report Type: Spontaneous
  Country: US (occurrence: US)
  Receive Date: 20130116
  Receipt Date: 20130116
  Transmission Date: 20140127
  Serious: Yes (Other)
  Sender: FDA-Public Use
  Company Number: US-BAYER-2013-004335

PATIENT
  Age: 24 Year
  Sex: Female

DRUGS (7)
  1. YASMIN [Suspect]
     Dosage: UNK
  2. OCELLA [Suspect]
     Dosage: UNK
  3. AMOXICILLIN [Concomitant]
     Indication: OTITIS MEDIA
     Dosage: 500 MG, UNK
  4. IBUPROFEN [Concomitant]
     Dosage: 600 MG, UNK
  5. OMEPRAZOLE [Concomitant]
     Dosage: 20 MG, UNK
  6. LEVOTHROID [Concomitant]
     Indication: HYPOTHYROIDISM
     Dosage: UNK
  7. NORCO [Concomitant]
     Dosage: ? TAB TWO TIMES PER DAY

REACTIONS (1)
  - Portal vein thrombosis [None]
